FAERS Safety Report 23797945 (Version 1)
Quarter: 2024Q2

REPORT INFORMATION
  Report Type: Spontaneous
  Country: FR (occurrence: FR)
  Receive Date: 20240430
  Receipt Date: 20240430
  Transmission Date: 20240715
  Serious: Yes (Other)
  Sender: FDA-Public Use
  Company Number: None

PATIENT

DRUGS (4)
  1. SUMATRIPTAN [Suspect]
     Active Substance: SUMATRIPTAN
     Indication: Product used for unknown indication
     Dosage: 50 MG 1 TO 2 X/D
     Route: 048
     Dates: start: 202303
  2. TRAMADOL [Suspect]
     Active Substance: TRAMADOL\TRAMADOL HYDROCHLORIDE
     Indication: Product used for unknown indication
     Dosage: 50 MG, QID; 50 MG  4 X/DAY
     Route: 048
     Dates: start: 202303
  3. CODEINE [Suspect]
     Active Substance: CODEINE
     Indication: Product used for unknown indication
     Dosage: 60 MG, 6D; 60 MG 6X/DAY
     Route: 048
     Dates: start: 202303
  4. ALPRAZOLAM [Suspect]
     Active Substance: ALPRAZOLAM
     Indication: Product used for unknown indication
     Dosage: 0.5 MG, QID; 0.5 MG 4X/DAY
     Route: 048
     Dates: start: 202303

REACTIONS (1)
  - Drug use disorder [Not Recovered/Not Resolved]
